FAERS Safety Report 10249412 (Version 3)
Quarter: 2015Q2

REPORT INFORMATION
  Report Type: Spontaneous
  Country: US (occurrence: US)
  Receive Date: 20140620
  Receipt Date: 20150415
  Transmission Date: 20150821
  Serious: Yes (Death, Life-Threatening, Hospitalization, Other)
  Sender: FDA-Public Use
  Company Number: US-009507513-1406USA009613

PATIENT
  Sex: Female
  Weight: 64.4 kg

DRUGS (3)
  1. JANUVIA [Suspect]
     Active Substance: SITAGLIPTIN PHOSPHATE
     Dosage: 50MG TAB, 1 1/2 TABS (75MG) DAILY
     Route: 048
     Dates: start: 20120403, end: 20120723
  2. JANUVIA [Suspect]
     Active Substance: SITAGLIPTIN PHOSPHATE
     Indication: TYPE 2 DIABETES MELLITUS
     Dosage: 25 MG, QD
     Route: 048
     Dates: start: 20100122, end: 20101221
  3. JANUVIA [Suspect]
     Active Substance: SITAGLIPTIN PHOSPHATE
     Dosage: 50 MG, QD
     Route: 048
     Dates: start: 20110527, end: 20120413

REACTIONS (9)
  - Pancreatic carcinoma [Fatal]
  - Diabetic neuropathy [Unknown]
  - Wrong technique in drug usage process [Unknown]
  - Hypertension [Unknown]
  - Stent placement [Unknown]
  - Macular degeneration [Unknown]
  - Cholangitis [Unknown]
  - Osteoarthritis [Unknown]
  - Cataract [Unknown]

NARRATIVE: CASE EVENT DATE: 201001
